FAERS Safety Report 8378772-3 (Version None)
Quarter: 2012Q2

REPORT INFORMATION
  Report Type: 
  Country: None (occurrence: None)
  Receive Date: 20120522
  Receipt Date: 20120515
  Transmission Date: 20120825
  Serious: Yes (Other)
  Sender: FDA-Public Use
  Company Number: SE-DENTSPLY-2012SCDP002924

PATIENT
  Sex: Male

DRUGS (1)
  1. ORAQIX PERIODONTAL GEL [Suspect]
     Indication: DENTAL CARE
     Dosage: 1 CARTRIDGE, 1.7 G X 1.8 ML
     Route: 004
     Dates: start: 20120126, end: 20120126

REACTIONS (2)
  - RESPIRATORY DISORDER [None]
  - THROAT IRRITATION [None]
